FAERS Safety Report 5810260-8 (Version None)
Quarter: 2008Q3

REPORT INFORMATION
  Report Type: 
  Country: None (occurrence: None)
  Receive Date: 20080715
  Receipt Date: 20080125
  Transmission Date: 20090109
  Serious: No
  Sender: FDA-Public Use
  Company Number: A0705489A

PATIENT
  Sex: Female

DRUGS (4)
  1. IMITREX [Suspect]
     Indication: MIGRAINE
     Dosage: 50MG AS REQUIRED
     Route: 048
  2. CELEBREX [Concomitant]
  3. VYTORIN [Concomitant]
  4. SUPPLEMENT [Concomitant]

REACTIONS (2)
  - SKIN LACERATION [None]
  - WOUND [None]
